FAERS Safety Report 11651904 (Version 2)
Quarter: 2015Q4

REPORT INFORMATION
  Report Type: Spontaneous
  Country: KR (occurrence: KR)
  Receive Date: 20151022
  Receipt Date: 20151022
  Transmission Date: 20160304
  Serious: Yes (Other)
  Sender: FDA-Public Use
  Company Number: KR-ACTAVIS-2015-22455

PATIENT
  Age: 47 Year
  Sex: Female

DRUGS (4)
  1. CARBOPLATIN (UNKNOWN) [Suspect]
     Active Substance: CARBOPLATIN
     Indication: METASTASES TO MENINGES
     Dosage: UNK UNK, CYCLICAL
     Route: 065
  2. DOCETAXEL (UNKNOWN) [Suspect]
     Active Substance: DOCETAXEL
     Indication: LUNG ADENOCARCINOMA
     Dosage: UNK UNK, CYCLICAL
     Route: 065
  3. CARBOPLATIN (UNKNOWN) [Suspect]
     Active Substance: CARBOPLATIN
     Indication: LUNG ADENOCARCINOMA
  4. DOCETAXEL (UNKNOWN) [Suspect]
     Active Substance: DOCETAXEL
     Indication: METASTASES TO MENINGES

REACTIONS (1)
  - Cytotoxic oedema [Unknown]
